FAERS Safety Report 8711506 (Version 2)
Quarter: 2012Q4

REPORT INFORMATION
  Report Type: 
  Country: BR (occurrence: BR)
  Receive Date: 20120807
  Receipt Date: 20120830
  Transmission Date: 20130627
  Serious: Yes (Hospitalization, Other)
  Sender: FDA-Public Use
  Company Number: BR-PFIZER INC-2012187896

PATIENT
  Age: 69 Year
  Sex: Female
  Weight: 99 kg

DRUGS (7)
  1. LIPITOR [Suspect]
     Dosage: UNK
     Route: 048
  2. AAS [Concomitant]
     Dosage: UNK
  3. ATENOLOL [Concomitant]
     Dosage: UNK
  4. CLOPIDOGREL BISULFATE [Concomitant]
     Dosage: UNK
  5. GLIFAGE [Concomitant]
     Dosage: UNK
  6. LOSARTAN POTASSIUM [Concomitant]
     Dosage: UNK
  7. OMEPRAZOL [Concomitant]
     Dosage: UNK

REACTIONS (2)
  - Arterial disorder [Unknown]
  - Angiopathy [Unknown]
